FAERS Safety Report 5457315-8 (Version None)
Quarter: 2007Q3

REPORT INFORMATION
  Report Type: 
  Country: None (occurrence: None)
  Receive Date: 20070918
  Receipt Date: 20070222
  Transmission Date: 20080115
  Serious: Yes (Other)
  Sender: FDA-Public Use
  Company Number: US-ASTRAZENECA-2007UW03481

PATIENT
  Age: 54 Year
  Sex: Male
  Weight: 99.8 kg

DRUGS (5)
  1. SEROQUEL [Suspect]
     Indication: CYCLOTHYMIC DISORDER
     Route: 048
     Dates: start: 20050301
  2. CLOZARIL [Concomitant]
  3. NEURONTIN [Concomitant]
  4. ARTHROTEC [Concomitant]
  5. LEXAPRO [Concomitant]

REACTIONS (1)
  - CATARACT [None]
